FAERS Safety Report 22241857 (Version 3)
Quarter: 2023Q2

REPORT INFORMATION
  Report Type: Report from Study
  Country: US (occurrence: US)
  Receive Date: 20230421
  Receipt Date: 20230613
  Transmission Date: 20230721
  Serious: Yes (Other)
  Sender: FDA-Public Use
  Company Number: US-002147023-NVSC2023US089831

PATIENT
  Sex: Female

DRUGS (1)
  1. PROMACTA [Suspect]
     Active Substance: ELTROMBOPAG OLAMINE
     Indication: Product used for unknown indication
     Dosage: UNK
     Route: 048

REACTIONS (11)
  - Glaucoma [Unknown]
  - Paranasal sinus discomfort [Unknown]
  - Sleep disorder [Unknown]
  - Restless legs syndrome [Unknown]
  - Sputum discoloured [Unknown]
  - Nausea [Unknown]
  - Dizziness [Unknown]
  - Oropharyngeal pain [Unknown]
  - Platelet count decreased [Unknown]
  - Pyrexia [Unknown]
  - Drug ineffective [Unknown]
